FAERS Safety Report 24032869 (Version 1)
Quarter: 2024Q3

REPORT INFORMATION
  Report Type: Spontaneous
  Country: US (occurrence: US)
  Receive Date: 20240701
  Receipt Date: 20240701
  Transmission Date: 20241016
  Serious: Yes (Hospitalization, Other)
  Sender: GLAXOSMITHKLINE
  Company Number: US-GLAXOSMITHKLINE-US2024GSK080010

PATIENT

DRUGS (2)
  1. BUPROPION HYDROCHLORIDE XL [Suspect]
     Active Substance: BUPROPION HYDROCHLORIDE
     Indication: Depression
     Dosage: 28 G (EXTENDED RELASE)
     Route: 048
  2. CANNABIS SATIVA SUBSP. INDICA TOP [Concomitant]
     Active Substance: CANNABIS SATIVA SUBSP. INDICA TOP
     Indication: Product used for unknown indication
     Dosage: UNK

REACTIONS (21)
  - Circulatory collapse [Recovered/Resolved]
  - Intentional overdose [Unknown]
  - Generalised tonic-clonic seizure [Recovered/Resolved]
  - Apnoea [Recovered/Resolved]
  - Pulseless electrical activity [Recovered/Resolved]
  - Areflexia [Recovered/Resolved]
  - Mydriasis [Recovered/Resolved]
  - Pupil fixed [Recovered/Resolved]
  - Ventricular tachycardia [Recovered/Resolved]
  - Bundle branch block left [Recovered/Resolved]
  - Hypokinesia [Recovered/Resolved]
  - Right ventricular ejection fraction decreased [Recovered/Resolved]
  - Status epilepticus [Recovered/Resolved]
  - Ventricular arrhythmia [Recovered/Resolved]
  - Toxicity to various agents [Recovered/Resolved]
  - Cardiotoxicity [Recovered/Resolved]
  - Cardiac arrest [Recovered/Resolved]
  - Ventricular dysfunction [Recovered/Resolved]
  - Cardiogenic shock [Recovered/Resolved]
  - Haemodynamic instability [Recovered/Resolved]
  - Sinus rhythm [Recovered/Resolved]
